FAERS Safety Report 9564520 (Version 3)
Quarter: 2013Q4

REPORT INFORMATION
  Report Type: Spontaneous
  Country: US (occurrence: US)
  Receive Date: 20130930
  Receipt Date: 20131024
  Transmission Date: 20140711
  Serious: Yes (Other)
  Sender: FDA-Public Use
  Company Number: US-PFIZER INC-2013276502

PATIENT
  Sex: Female

DRUGS (3)
  1. CALAN [Suspect]
     Dosage: UNK
  2. CALAN SR [Suspect]
     Dosage: UNK
  3. CARDIZEM [Suspect]
     Dosage: UNK

REACTIONS (5)
  - Breast disorder [Unknown]
  - Swollen tongue [Unknown]
  - Lip swelling [Unknown]
  - Fatigue [Unknown]
  - Feeling abnormal [Unknown]
